FAERS Safety Report 19790834 (Version 3)
Quarter: 2021Q4

REPORT INFORMATION
  Report Type: Spontaneous
  Country: US (occurrence: US)
  Receive Date: 20210906
  Receipt Date: 20211005
  Transmission Date: 20220303
  Serious: No
  Sender: FDA-Public Use
  Company Number: US-AMGEN-USASP2021136655

PATIENT
  Sex: Male

DRUGS (1)
  1. NEULASTA [Suspect]
     Active Substance: PEGFILGRASTIM
     Indication: Product used for unknown indication
     Dosage: UNK
     Route: 065

REACTIONS (5)
  - Application site swelling [Unknown]
  - Wrong technique in product usage process [Unknown]
  - Application site bruise [Unknown]
  - Device alarm issue [Unknown]
  - Device use error [Unknown]

NARRATIVE: CASE EVENT DATE: 20210831
